FAERS Safety Report 25920662 (Version 5)
Quarter: 2025Q4

REPORT INFORMATION
  Report Type: Spontaneous
  Country: BR (occurrence: BR)
  Receive Date: 20251014
  Receipt Date: 20251112
  Transmission Date: 20260117
  Serious: Yes (Hospitalization, Other)
  Sender: SANDOZ
  Company Number: BR-002147023-NVSC2025BR130354

PATIENT
  Sex: Female
  Weight: 100 kg

DRUGS (9)
  1. ANASTROZOLE [Suspect]
     Active Substance: ANASTROZOLE
     Indication: Breast cancer
     Dosage: 1 MG, QD (ONE TABLET IN THE MORNING EVERY DAY)
     Route: 065
  2. RIBOCICLIB [Suspect]
     Active Substance: RIBOCICLIB
     Dosage: FILM-COATED TABLET
     Route: 048
  3. RIBOCICLIB [Suspect]
     Active Substance: RIBOCICLIB
     Indication: Breast cancer metastatic
     Dosage: UNK
     Route: 048
  4. RIBOCICLIB [Suspect]
     Active Substance: RIBOCICLIB
     Dosage: 3 DOSAGE FORM, QD, (THREE TABLETS EVERY  DAY IN THE MORNING WITH A PAUSE AFTER 21  DAYS)
     Route: 065
     Dates: start: 20250822
  5. RIBOCICLIB [Suspect]
     Active Substance: RIBOCICLIB
     Dosage: 3 DOSAGE FORM, OTHER (3 TABLETS)
     Route: 065
     Dates: start: 20251029
  6. RIBOCICLIB [Suspect]
     Active Substance: RIBOCICLIB
     Indication: Metastases to bone
     Dosage: UNK
     Route: 065
     Dates: start: 20250722, end: 20250813
  7. RIBOCICLIB [Suspect]
     Active Substance: RIBOCICLIB
     Dosage: UNK
     Route: 065
     Dates: start: 20250819, end: 20250822
  8. RIBOCICLIB [Suspect]
     Active Substance: RIBOCICLIB
     Dosage: UNK (THIRD CYCLE)
     Route: 065
     Dates: start: 20250927
  9. ANASTROZOLE [Concomitant]
     Active Substance: ANASTROZOLE
     Indication: Product used for unknown indication
     Dosage: UNK
     Route: 065

REACTIONS (27)
  - Gait disturbance [Recovering/Resolving]
  - Femur fracture [Recovering/Resolving]
  - Blood pressure decreased [Recovered/Resolved]
  - Eating disorder [Recovered/Resolved]
  - Influenza [Recovered/Resolved]
  - Adverse food reaction [Unknown]
  - Weight bearing difficulty [Unknown]
  - Hypokinesia [Unknown]
  - Gait inability [Unknown]
  - Eating disorder [Recovering/Resolving]
  - Decreased immune responsiveness [Recovered/Resolved]
  - Influenza [Recovered/Resolved]
  - Decreased appetite [Recovered/Resolved]
  - Breast swelling [Recovering/Resolving]
  - Alopecia [Recovered/Resolved]
  - Asthenia [Recovered/Resolved]
  - Memory impairment [Unknown]
  - Vomiting [Recovered/Resolved]
  - Nausea [Recovered/Resolved]
  - Malaise [Recovered/Resolved]
  - Nausea [Recovered/Resolved]
  - Vomiting [Recovered/Resolved]
  - Vomiting [Recovered/Resolved]
  - Nausea [Recovered/Resolved]
  - Vomiting [Recovered/Resolved]
  - Drug effect less than expected [Unknown]
  - Product storage error [Recovered/Resolved]

NARRATIVE: CASE EVENT DATE: 20250101
